FAERS Safety Report 4979836-4 (Version None)
Quarter: 2006Q2

REPORT INFORMATION
  Report Type: 
  Country: None (occurrence: None)
  Receive Date: 20060421
  Receipt Date: 20060125
  Transmission Date: 20061013
  Serious: Yes (Hospitalization)
  Sender: FDA-Public Use
  Company Number: US-MERCK-0601USA03196

PATIENT
  Age: 60 Year
  Sex: Male

DRUGS (13)
  1. VIOXX [Suspect]
     Indication: LIMB INJURY
     Route: 048
     Dates: start: 20030611, end: 20030101
  2. PRILOSEC [Concomitant]
     Route: 065
  3. ZANTAC [Concomitant]
     Route: 065
  4. CALAN [Concomitant]
     Route: 065
  5. PAXIL [Concomitant]
     Route: 065
  6. OXYCONTIN [Concomitant]
     Route: 065
  7. ACCUPRIL [Concomitant]
     Route: 065
  8. GARLIC [Concomitant]
     Route: 065
  9. NIACIN [Concomitant]
     Route: 065
  10. ASCORBIC ACID [Concomitant]
     Route: 065
  11. FOLIC ACID [Concomitant]
     Route: 065
  12. VITAMIN B COMPLEX [Concomitant]
     Route: 065
  13. PERCOCET [Concomitant]
     Route: 065

REACTIONS (18)
  - ABDOMINAL PAIN UPPER [None]
  - ARTERIOVENOUS MALFORMATION [None]
  - DIVERTICULUM [None]
  - FATIGUE [None]
  - GASTRITIS [None]
  - GASTROINTESTINAL HAEMORRHAGE [None]
  - GASTROOESOPHAGEAL REFLUX DISEASE [None]
  - HAEMANGIOMA [None]
  - HAEMORRHOIDS [None]
  - HEADACHE [None]
  - HIATUS HERNIA [None]
  - INSOMNIA [None]
  - INSULIN RESISTANCE SYNDROME [None]
  - INTESTINAL POLYP [None]
  - IRON DEFICIENCY ANAEMIA [None]
  - OESOPHAGITIS [None]
  - RASH PRURITIC [None]
  - RENAL DISORDER [None]
